FAERS Safety Report 11414375 (Version 1)
Quarter: 2015Q3

REPORT INFORMATION
  Report Type: Spontaneous
  Country: US (occurrence: US)
  Receive Date: 20150824
  Receipt Date: 20150824
  Transmission Date: 20151125
  Serious: No
  Sender: FDA-Public Use
  Company Number: US-PERNIX THERAPEUTICS-2015PT000108

PATIENT

DRUGS (3)
  1. ZOHYDRO [Suspect]
     Active Substance: HYDROCODONE BITARTRATE
     Indication: PAIN
     Dosage: 20 MG, EVERY 12 HOURS
     Route: 048
     Dates: start: 20150316, end: 20150416
  2. HYDROCODONE [Concomitant]
     Active Substance: HYDROCODONE
     Indication: PAIN
     Dosage: 1-2 TABLETS EVERY 4 HOURS AS NEEDED
     Route: 048
  3. ZOHYDRO [Suspect]
     Active Substance: HYDROCODONE BITARTRATE
     Dosage: 40 MG, EVERY 12 HOURS
     Dates: start: 20150416

REACTIONS (3)
  - Body height decreased [None]
  - Drug ineffective [Unknown]
  - Pain [None]

NARRATIVE: CASE EVENT DATE: 2015
